FAERS Safety Report 13073576 (Version 5)
Quarter: 2017Q4

REPORT INFORMATION
  Report Type: Spontaneous
  Country: US (occurrence: US)
  Receive Date: 20161229
  Receipt Date: 20171019
  Transmission Date: 20180320
  Serious: Yes (Hospitalization, Other)
  Sender: FDA-Public Use
  Company Number: US-009507513-1612USA010314

PATIENT
  Age: 72 Year
  Sex: Female
  Weight: 134.8 kg

DRUGS (14)
  1. JINTELI [Concomitant]
     Active Substance: ETHINYL ESTRADIOL\NORETHINDRONE ACETATE
     Indication: BONE DISORDER
     Dosage: UNK (5 YEARS FOR BONES)
     Dates: start: 2012
  2. FOLIC ACID. [Concomitant]
     Active Substance: FOLIC ACID
     Dosage: UNK (2 YEARS, OVER THE COUNTER)
     Dates: start: 2015
  3. BIOTIN [Concomitant]
     Active Substance: BIOTIN
     Dosage: UNK (2 YEARS, OVER THE COUNTER)
     Dates: start: 2015
  4. AVASTIN [Suspect]
     Active Substance: BEVACIZUMAB
     Indication: SARCOMA METASTATIC
     Dosage: UNK
     Dates: start: 201602, end: 201605
  5. TEMODAR [Suspect]
     Active Substance: TEMOZOLOMIDE
     Indication: METASTASES TO CENTRAL NERVOUS SYSTEM
     Dosage: UNK
     Route: 048
     Dates: start: 201602, end: 201605
  6. AVASTIN [Suspect]
     Active Substance: BEVACIZUMAB
     Indication: METASTASES TO LUNG
  7. SUTENT [Suspect]
     Active Substance: SUNITINIB MALATE
     Indication: LUNG NEOPLASM MALIGNANT
     Dosage: 37.5 MG, QD
     Route: 048
     Dates: start: 20161208, end: 20170201
  8. CALCIUM (UNSPECIFIED) [Concomitant]
     Active Substance: CALCIUM
     Dosage: UNK (FROM 10 YEARS, OVER THE COUNTER)
     Dates: start: 2007
  9. ZOFRAN [Concomitant]
     Active Substance: ONDANSETRON HYDROCHLORIDE
     Dosage: UNK
  10. FERROUS SULFATE. [Concomitant]
     Active Substance: FERROUS SULFATE
     Dosage: UNK
  11. FENTANYL. [Concomitant]
     Active Substance: FENTANYL
     Dosage: 1 DOSE, EVERY 4 DAYS (ALSO REPORTED AS 4 X WEEK)
     Dates: start: 201606
  12. TEMODAR [Suspect]
     Active Substance: TEMOZOLOMIDE
     Indication: METASTASES TO LUNG
  13. TEMODAR [Suspect]
     Active Substance: TEMOZOLOMIDE
     Indication: SARCOMA METASTATIC
  14. AVASTIN [Suspect]
     Active Substance: BEVACIZUMAB
     Indication: METASTASES TO CENTRAL NERVOUS SYSTEM

REACTIONS (3)
  - Guillain-Barre syndrome [Unknown]
  - Anaemia [Not Recovered/Not Resolved]
  - Red blood cell count decreased [Not Recovered/Not Resolved]

NARRATIVE: CASE EVENT DATE: 201606
